FAERS Safety Report 18800483 (Version 1)
Quarter: 2021Q1

REPORT INFORMATION
  Report Type: Spontaneous
  Country: AU (occurrence: AU)
  Receive Date: 20210128
  Receipt Date: 20210128
  Transmission Date: 20210419
  Serious: Yes (Hospitalization)
  Sender: FDA-Public Use
  Company Number: AU-009507513-2101AUS010996

PATIENT
  Age: 24 Year
  Sex: Female

DRUGS (3)
  1. RIZATRIPTAN WAFER 10 MG [Suspect]
     Active Substance: RIZATRIPTAN
     Dosage: SECOND DOSE AT 1030
  2. RIZATRIPTAN WAFER 10 MG [Suspect]
     Active Substance: RIZATRIPTAN
     Indication: MIGRAINE
     Dosage: FIRST DOSE AT 0830
  3. QLAIRA [Concomitant]
     Active Substance: DIENOGEST\ESTRADIOL VALERATE
     Dosage: UNK

REACTIONS (4)
  - Rash macular [Unknown]
  - Paraesthesia oral [Not Recovered/Not Resolved]
  - Hypoaesthesia [Not Recovered/Not Resolved]
  - Swollen tongue [Not Recovered/Not Resolved]

NARRATIVE: CASE EVENT DATE: 20191011
